FAERS Safety Report 13357148 (Version 1)
Quarter: 2017Q1

REPORT INFORMATION
  Report Type: Spontaneous
  Country: US (occurrence: US)
  Receive Date: 20170322
  Receipt Date: 20170322
  Transmission Date: 20170429
  Serious: No
  Sender: FDA-Public Use
  Company Number: US-ELI_LILLY_AND_COMPANY-US201703005593

PATIENT
  Age: 79 Year
  Sex: Female

DRUGS (8)
  1. METOPROLOL. [Concomitant]
     Active Substance: METOPROLOL
  2. XANAX [Concomitant]
     Active Substance: ALPRAZOLAM
     Indication: INSOMNIA
  3. ISOSORBIDE. [Concomitant]
     Active Substance: ISOSORBIDE
  4. VITAMIN D [Concomitant]
     Active Substance: CHOLECALCIFEROL
  5. ROSUVASTATIN. [Concomitant]
     Active Substance: ROSUVASTATIN
  6. CALCIUM [Concomitant]
     Active Substance: CALCIUM
  7. CLOPIDOGREL [Concomitant]
     Active Substance: CLOPIDOGREL BISULFATE
  8. FORTEO [Suspect]
     Active Substance: TERIPARATIDE
     Indication: OSTEOPOROSIS
     Dosage: UNK, QD
     Route: 065
     Dates: start: 201610

REACTIONS (11)
  - Nasopharyngitis [Unknown]
  - Pain in extremity [Unknown]
  - Nausea [Unknown]
  - Pruritus [Recovering/Resolving]
  - Arthralgia [Unknown]
  - Insomnia [Not Recovered/Not Resolved]
  - Bone pain [Unknown]
  - Chills [Unknown]
  - Spinal fracture [Recovering/Resolving]
  - Sneezing [Unknown]
  - Dry skin [Unknown]

NARRATIVE: CASE EVENT DATE: 201611
